FAERS Safety Report 14652700 (Version 1)
Quarter: 2018Q1

REPORT INFORMATION
  Report Type: Spontaneous
  Country: US (occurrence: US)
  Receive Date: 20180319
  Receipt Date: 20180319
  Transmission Date: 20180509
  Serious: No
  Sender: FDA-Public Use
  Company Number: US-009507513-1802USA012995

PATIENT
  Sex: Male

DRUGS (1)
  1. STROMECTOL [Suspect]
     Active Substance: IVERMECTIN
     Dosage: UNK
     Route: 065
     Dates: start: 20180225

REACTIONS (2)
  - Accidental exposure to product [Unknown]
  - Exposure via eye contact [Unknown]

NARRATIVE: CASE EVENT DATE: 20180225
